FAERS Safety Report 13682662 (Version 2)
Quarter: 2017Q2

REPORT INFORMATION
  Report Type: Spontaneous
  Country: US (occurrence: US)
  Receive Date: 20170623
  Receipt Date: 20170623
  Transmission Date: 20170830
  Serious: No
  Sender: FDA-Public Use
  Company Number: US-MALLINCKRODT-T201604104

PATIENT
  Age: 77 Year
  Sex: Male
  Weight: 129 kg

DRUGS (21)
  1. CALCITRIOL. [Concomitant]
     Active Substance: CALCITRIOL
     Dosage: 0.50 MG QD
  2. BUMEX [Concomitant]
     Active Substance: BUMETANIDE
     Dosage: 1 MG QD PRN
  3. VITAMIN B12 [Concomitant]
     Active Substance: CYANOCOBALAMIN
     Dosage: MONTHLY
  4. H.P. ACTHAR [Suspect]
     Active Substance: CORTICOTROPIN
     Dosage: 80 UNITSUNK
     Route: 058
     Dates: start: 201608
  5. COZAAR [Concomitant]
     Active Substance: LOSARTAN POTASSIUM
     Dosage: 50 MG BID
  6. COREG [Concomitant]
     Active Substance: CARVEDILOL
     Dosage: 20 MG QD
  7. WELLBUTRIN [Concomitant]
     Active Substance: BUPROPION HYDROCHLORIDE
     Dosage: 150 MG QD
  8. H.P. ACTHAR [Suspect]
     Active Substance: CORTICOTROPIN
     Indication: NEPHROTIC SYNDROME
     Dosage: 40 UNITS (16 DOSES)
     Route: 058
     Dates: start: 20160623
  9. CLONIDINE. [Concomitant]
     Active Substance: CLONIDINE
     Dosage: 1 MG BID
  10. CARDURA [Concomitant]
     Active Substance: DOXAZOSIN MESYLATE
     Dosage: 8 MG, BID
  11. COREG [Concomitant]
     Active Substance: CARVEDILOL
     Dosage: 40 MG QD
     Dates: start: 201608
  12. LEXAPRO [Concomitant]
     Active Substance: ESCITALOPRAM OXALATE
     Dosage: 20 MG QD
  13. BUSPIRONE [Concomitant]
     Active Substance: BUSPIRONE HYDROCHLORIDE
     Dosage: 15 MG BID
  14. MAGNESIUM OXIDE. [Concomitant]
     Active Substance: MAGNESIUM OXIDE
  15. AZILECT [Concomitant]
     Active Substance: RASAGILINE MESYLATE
     Dosage: 90 MG BID
  16. DEXALONE [Concomitant]
     Dosage: 60 MG QD
  17. CLONIDINE. [Concomitant]
     Active Substance: CLONIDINE
     Dosage: 1 MG AS NEEDED
  18. ZOCOR [Concomitant]
     Active Substance: SIMVASTATIN
     Dosage: 10 MG QD
  19. LUNESTA [Concomitant]
     Active Substance: ESZOPICLONE
     Dosage: 2 MG QHS PRN
  20. GLIMEPIRIDE. [Concomitant]
     Active Substance: GLIMEPIRIDE
     Indication: NEPHROTIC SYNDROME
     Dosage: 1 MG QD
  21. ASPIRIN. [Concomitant]
     Active Substance: ASPIRIN
     Dosage: 81 MG QD

REACTIONS (1)
  - Protein urine present [Not Recovered/Not Resolved]

NARRATIVE: CASE EVENT DATE: 20160819
